FAERS Safety Report 12469922 (Version 1)
Quarter: 2016Q2

REPORT INFORMATION
  Report Type: Spontaneous
  Country: US (occurrence: US)
  Receive Date: 20160615
  Receipt Date: 20160615
  Transmission Date: 20160815
  Serious: No
  Sender: FDA-Public Use
  Company Number: US-BAYER-2016-117114

PATIENT
  Sex: Female
  Weight: 71.66 kg

DRUGS (7)
  1. CENTRUM SILVER [Concomitant]
     Active Substance: MINERALS\VITAMINS
  2. ESTER C [Concomitant]
  3. CLARITIN [Suspect]
     Active Substance: LORATADINE
     Indication: EYE SWELLING
  4. CLARITIN [Suspect]
     Active Substance: LORATADINE
     Indication: ERYTHEMA
  5. VITAMIN D [Concomitant]
     Active Substance: CHOLECALCIFEROL
  6. CLARITIN [Suspect]
     Active Substance: LORATADINE
     Indication: SEASONAL ALLERGY
     Dosage: 1 DF, UNK
     Route: 048
  7. XALATAN [Concomitant]
     Active Substance: LATANOPROST

REACTIONS (1)
  - Expired product administered [None]

NARRATIVE: CASE EVENT DATE: 201605
